FAERS Safety Report 25041714 (Version 1)
Quarter: 2025Q1

REPORT INFORMATION
  Report Type: Other
  Country: CA (occurrence: CA)
  Receive Date: 20250305
  Receipt Date: 20250305
  Transmission Date: 20250409
  Serious: Yes (Other)
  Sender: PFIZER
  Company Number: CA-PFIZER INC-202500048922

PATIENT
  Age: 32 Year
  Sex: Male

DRUGS (2)
  1. CABERGOLINE [Suspect]
     Active Substance: CABERGOLINE
     Indication: Hyperadrenocorticism
     Dosage: 0.5 MG, 2 EVERY WEEK
     Route: 065
  2. DESMOPRESSIN [Concomitant]
     Active Substance: DESMOPRESSIN
     Indication: Hyperadrenocorticism
     Route: 048

REACTIONS (2)
  - Adrenal insufficiency [Unknown]
  - Off label use [Unknown]
